FAERS Safety Report 14272289 (Version 2)
Quarter: 2017Q4

REPORT INFORMATION
  Report Type: Spontaneous
  Country: UA (occurrence: UA)
  Receive Date: 20171211
  Receipt Date: 20171225
  Transmission Date: 20180321
  Serious: Yes (Other)
  Sender: FDA-Public Use
  Company Number: UA-B.I. PHARMACEUTICALS,INC./RIDGEFIELD-2017-BI-065959

PATIENT
  Age: 79 Year
  Sex: Male

DRUGS (1)
  1. OMNIC [Suspect]
     Active Substance: TAMSULOSIN HYDROCHLORIDE
     Indication: DYSURIA
     Route: 048
     Dates: start: 20171121, end: 20171204

REACTIONS (2)
  - Haematuria [Unknown]
  - Off label use [Unknown]

NARRATIVE: CASE EVENT DATE: 20171121
